FAERS Safety Report 25244609 (Version 1)
Quarter: 2025Q2

REPORT INFORMATION
  Report Type: Spontaneous
  Country: FR (occurrence: FR)
  Receive Date: 20250428
  Receipt Date: 20250428
  Transmission Date: 20250717
  Serious: Yes (Hospitalization)
  Sender: DR REDDYS
  Company Number: None

PATIENT
  Age: 70 Year
  Sex: Female
  Weight: 47.7 kg

DRUGS (1)
  1. DOXORUBICIN [Suspect]
     Active Substance: DOXORUBICIN
     Indication: Solitary fibrous tumour
     Dates: start: 2024

REACTIONS (1)
  - Cardiotoxicity [Not Recovered/Not Resolved]

NARRATIVE: CASE EVENT DATE: 20250201
